FAERS Safety Report 9124061 (Version 2)
Quarter: 2013Q3

REPORT INFORMATION
  Report Type: Report from Study
  Country: JP (occurrence: JP)
  Receive Date: 20130227
  Receipt Date: 20130710
  Transmission Date: 20140515
  Serious: Yes (Death, Hospitalization)
  Sender: FDA-Public Use
  Company Number: JP-009507513-1302JPN011652

PATIENT
  Age: 47 Year
  Sex: Male
  Weight: 59 kg

DRUGS (13)
  1. TEMOZOLOMIDE [Suspect]
     Indication: GLIOBLASTOMA MULTIFORME
     Dosage: 150 MG/M2, QD
     Route: 041
     Dates: start: 20110411, end: 20110415
  2. TEMOZOLOMIDE [Suspect]
     Dosage: 150 MG/M2, QD
     Route: 041
     Dates: start: 20110606, end: 20110610
  3. TEMOZOLOMIDE [Suspect]
     Dosage: 150 MG/M2, QD
     Route: 041
     Dates: start: 20110905, end: 20110909
  4. TEMOZOLOMIDE [Suspect]
     Dosage: 150 MG/M2, QD
     Route: 041
     Dates: start: 20111011, end: 20111015
  5. TEMODAL CAPSULES 20MG [Suspect]
     Indication: GLIOBLASTOMA MULTIFORME
     Dosage: UNK
     Route: 048
     Dates: start: 20081115, end: 20110122
  6. MAGMITT [Concomitant]
     Indication: PROPHYLAXIS
     Dosage: UNK
     Route: 048
     Dates: end: 20111217
  7. CEREB [Concomitant]
     Indication: PROPHYLAXIS
     Dosage: UNK
     Route: 048
     Dates: end: 20111217
  8. EXCEGRAN [Concomitant]
     Indication: PROPHYLAXIS
     Dosage: UNK
     Route: 048
     Dates: end: 20111217
  9. CERCINE [Concomitant]
     Indication: PROPHYLAXIS
     Dosage: UNK
     Route: 048
     Dates: end: 20111217
  10. TOPINA [Concomitant]
     Indication: PROPHYLAXIS
     Dosage: UNK
     Route: 048
     Dates: end: 20111217
  11. BIOFERMIN (BACILLUS SUBTILIS (+) LACTOBACILLUS ACIDOPHILUS (+) STREPTO [Concomitant]
     Indication: PROPHYLAXIS
     Dosage: UNK
     Route: 048
     Dates: end: 20111217
  12. LEVOGLUTAMIDE (+) SODIUM GUALENATE [Concomitant]
     Indication: PROPHYLAXIS
     Dosage: UNK
     Route: 048
     Dates: end: 20111217
  13. GASMOTIN [Concomitant]
     Indication: PROPHYLAXIS
     Dosage: UNK
     Route: 048
     Dates: end: 20111217

REACTIONS (8)
  - Disease progression [Fatal]
  - Pneumonia [Recovered/Resolved]
  - White blood cell count increased [Not Recovered/Not Resolved]
  - Neutrophil count increased [Not Recovered/Not Resolved]
  - Lymphocyte count decreased [Unknown]
  - Gamma-glutamyltransferase increased [Recovered/Resolved]
  - C-reactive protein increased [Recovered/Resolved]
  - Hypokalaemia [Recovered/Resolved]
